FAERS Safety Report 8722703 (Version 2)
Quarter: 2012Q4

REPORT INFORMATION
  Report Type: Report from Study
  Country: DE (occurrence: DE)
  Receive Date: 20120814
  Receipt Date: 20120914
  Transmission Date: 20130627
  Serious: Yes (Death)
  Sender: FDA-Public Use
  Company Number: DE-CELGENEUS-062-50794-12080551

PATIENT
  Age: 82 Year
  Sex: Male
  Weight: 70 kg

DRUGS (1)
  1. VIDAZA [Suspect]
     Indication: RAEB
     Dosage: 75 milligram/sq. meter
     Route: 058
     Dates: start: 20040412, end: 20120405

REACTIONS (1)
  - Acute myeloid leukaemia [Fatal]
